FAERS Safety Report 9104048 (Version 2)
Quarter: 2013Q1

REPORT INFORMATION
  Report Type: Spontaneous
  Country: JP (occurrence: JP)
  Receive Date: 20130219
  Receipt Date: 20130301
  Transmission Date: 20140127
  Serious: Yes (Other)
  Sender: FDA-Public Use
  Company Number: JP-ROCHE-1191712

PATIENT
  Age: 8 Year
  Sex: Male
  Weight: 21.9 kg

DRUGS (4)
  1. TAMIFLU [Suspect]
     Indication: INFLUENZA
     Route: 048
     Dates: start: 20130203
  2. LAXOBERON [Concomitant]
     Route: 065
  3. RACOL [Concomitant]
     Route: 065
  4. MUCODYNE [Concomitant]
     Indication: RESPIRATORY TRACT HAEMORRHAGE
     Route: 048
     Dates: start: 20130206

REACTIONS (1)
  - Respiratory tract haemorrhage [Recovered/Resolved]
